FAERS Safety Report 15428590 (Version 1)
Quarter: 2018Q3

REPORT INFORMATION
  Report Type: Spontaneous
  Country: US (occurrence: US)
  Receive Date: 20180926
  Receipt Date: 20180926
  Transmission Date: 20181010
  Serious: Yes (Other)
  Sender: FDA-Public Use
  Company Number: US-STRIDES ARCOLAB LIMITED-2018SP008246

PATIENT

DRUGS (10)
  1. ALEMTUZUMAB [Suspect]
     Active Substance: ALEMTUZUMAB
     Dosage: 20 MG, DAILY, BETWEEN PRETRANSPLANT DAYS 22 AND 18
     Route: 065
  2. ALEMTUZUMAB [Suspect]
     Active Substance: ALEMTUZUMAB
     Dosage: 10 MG, DAILY BETWEEN PRETRANSPLANT DAYS 22 AND 18
     Route: 065
  3. MYCOPHENOLATE MOFETIL. [Suspect]
     Active Substance: MYCOPHENOLATE MOFETIL
     Indication: PROPHYLAXIS AGAINST GRAFT VERSUS HOST DISEASE
     Dosage: 15 MG/KG, EVERY 8 HOURS
     Route: 065
  4. ALEMTUZUMAB [Suspect]
     Active Substance: ALEMTUZUMAB
     Indication: CORD BLOOD TRANSPLANT THERAPY
     Dosage: 3 MG, TEST DOSE IV OR S.C
     Route: 065
  5. FLUDARABINE [Suspect]
     Active Substance: FLUDARABINE PHOSPHATE
     Indication: CORD BLOOD TRANSPLANT THERAPY
     Dosage: 30 MG/M^2/DOSE ,DAILY ON PRETRANSPLANT DAYS EIGHT TO FOUR
     Route: 042
  6. MELPHALAN. [Suspect]
     Active Substance: MELPHALAN
     Indication: CORD BLOOD TRANSPLANT THERAPY
     Dosage: 140 MG/M2, ON PRETRANSPLANT DAY THREE
     Route: 042
  7. GRANULOCYTE COLONY STIMULATING FACTOR [Suspect]
     Active Substance: GRANULOCYTE COLONY-STIMULATING FACTOR NOS
     Indication: CORD BLOOD TRANSPLANT THERAPY
     Dosage: ON POSTOPERATIVE DAY ONE
     Route: 065
  8. THIOTEPA. [Suspect]
     Active Substance: THIOTEPA
     Indication: CORD BLOOD TRANSPLANT THERAPY
     Dosage: 4 MG/KG, EVERY 12 HRS, ON PRE?TRANSPLANT DAY FOUR
     Route: 042
  9. HYDROXYUREA. [Suspect]
     Active Substance: HYDROXYUREA
     Indication: CORD BLOOD TRANSPLANT THERAPY
     Dosage: 30 MG/KG, QD
     Route: 048
  10. ALEMTUZUMAB [Suspect]
     Active Substance: ALEMTUZUMAB
     Dosage: 15 MG, DAILY, BETWEEN PRETRANSPLANT DAYS 22 AND 18
     Route: 065

REACTIONS (4)
  - Paresis [Unknown]
  - Condition aggravated [Unknown]
  - Drug ineffective for unapproved indication [Unknown]
  - Tachycardia [Unknown]
